FAERS Safety Report 8720266 (Version 1)
Quarter: 2012Q4

REPORT INFORMATION
  Report Type: 
  Country: GB (occurrence: GB)
  Receive Date: 20120904
  Receipt Date: 20120904
  Transmission Date: 20130627
  Serious: No
  Sender: FDA-Public Use
  Company Number: GB-ASTRAZENECA-2012SE34223

PATIENT
  Age: 89 Year
  Sex: Female
  Weight: 58 kg

DRUGS (9)
  1. CASODEX [Suspect]
     Route: 048
     Dates: start: 20120509, end: 20120519
  2. ALENDRONIC ACID [Concomitant]
     Indication: OSTEOPOROSIS
     Route: 048
     Dates: start: 20101220
  3. WARFARIN [Concomitant]
     Indication: ATRIAL FIBRILLATION
     Route: 048
     Dates: start: 20101220
  4. CARBOMER [Concomitant]
     Indication: GLAUCOMA
     Dosage: TDS BOTH EYES
     Route: 047
     Dates: start: 201010
  5. DORZOLAMIDE [Concomitant]
     Indication: GLAUCOMA
     Dosage: TWICE DAILY RIGHR EYE
     Route: 047
     Dates: start: 200506
  6. CITALOPRAM [Concomitant]
  7. SIMVASTATIN [Concomitant]
     Indication: MYOCARDIAL ISCHAEMIA
     Route: 048
     Dates: start: 200202
  8. ISOSORBID MONONITRATE [Concomitant]
     Indication: MYOCARDIAL ISCHAEMIA
     Route: 048
     Dates: start: 1997
  9. CALCEOS [Concomitant]
     Indication: OSTEOPOROSIS

REACTIONS (2)
  - Condition aggravated [Unknown]
  - Intentional drug misuse [Unknown]
